FAERS Safety Report 14577447 (Version 3)
Quarter: 2018Q2

REPORT INFORMATION
  Report Type: Spontaneous
  Country: US (occurrence: US)
  Receive Date: 20180227
  Receipt Date: 20180524
  Transmission Date: 20180711
  Serious: Yes (Disabling, Other)
  Sender: FDA-Public Use
  Company Number: US-009507513-1802USA013278

PATIENT
  Sex: Female
  Weight: 107.3 kg

DRUGS (3)
  1. CORTICOSTEROIDS (UNSPECIFIED) [Concomitant]
     Active Substance: UNSPECIFIED INGREDIENT
     Indication: ADDISON^S DISEASE
     Dosage: UNK, BID
  2. OXYCODONE [Concomitant]
     Active Substance: OXYCODONE
     Indication: BACK PAIN
     Dosage: 15 MG, UNK
  3. BELSOMRA [Suspect]
     Active Substance: SUVOREXANT
     Indication: INSOMNIA
     Dosage: 20 MG, UNK
     Route: 048
     Dates: start: 20171027, end: 20180107

REACTIONS (14)
  - Haemarthrosis [Recovered/Resolved]
  - Back pain [Not Recovered/Not Resolved]
  - Spinal disorder [Not Recovered/Not Resolved]
  - Weight decreased [Recovering/Resolving]
  - Joint injury [Recovering/Resolving]
  - Fatigue [Unknown]
  - Back injury [Not Recovered/Not Resolved]
  - Head injury [Recovering/Resolving]
  - Eye contusion [Recovering/Resolving]
  - Balance disorder [Recovering/Resolving]
  - Peroneal nerve palsy [Recovering/Resolving]
  - Spinal compression fracture [Not Recovered/Not Resolved]
  - Fall [Recovering/Resolving]
  - Pain in extremity [Not Recovered/Not Resolved]

NARRATIVE: CASE EVENT DATE: 2017
